FAERS Safety Report 17842588 (Version 3)
Quarter: 2023Q1

REPORT INFORMATION
  Report Type: Spontaneous
  Country: HU (occurrence: HU)
  Receive Date: 20200529
  Receipt Date: 20230203
  Transmission Date: 20230418
  Serious: Yes (Other)
  Sender: FDA-Public Use
  Company Number: None

PATIENT
  Age: 35 Year
  Sex: Female
  Weight: 53 kg

DRUGS (14)
  1. MONTELUKAST [Suspect]
     Active Substance: MONTELUKAST SODIUM
     Indication: Product used for unknown indication
     Dosage: 10 MG, QD (DRUG TAKEN BY THE FATHER)
     Route: 050
     Dates: start: 20190401
  2. EUTHYROX [Suspect]
     Active Substance: LEVOTHYROXINE SODIUM
     Indication: Hypothyroidism
     Dosage: 50 UG, QD (DAILY (1 TABLET) CONTINOUS SINCE SPRING OF 2010)
     Route: 065
     Dates: start: 2010
  3. EUTHYROX [Suspect]
     Active Substance: LEVOTHYROXINE SODIUM
     Dosage: 50 UG, QD DAILY (1 TABLET) CONTINOUS SINCE SPRING OF 2010
     Route: 065
     Dates: start: 201003
  4. EUTHYROX [Suspect]
     Active Substance: LEVOTHYROXINE SODIUM
     Dosage: UNK
     Route: 065
     Dates: start: 20100728
  5. NADROPARIN CALCIUM [Suspect]
     Active Substance: NADROPARIN CALCIUM
     Indication: Factor V Leiden mutation
     Dosage: UNK
     Route: 050
     Dates: start: 20090217
  6. NADROPARIN CALCIUM [Suspect]
     Active Substance: NADROPARIN CALCIUM
     Dosage: UNK
     Route: 065
     Dates: start: 20100811
  7. NADROPARIN CALCIUM [Suspect]
     Active Substance: NADROPARIN CALCIUM
     Dosage: UNK
     Route: 065
     Dates: start: 20150818
  8. NADROPARIN CALCIUM [Suspect]
     Active Substance: NADROPARIN CALCIUM
     Dosage: 0.4 ML, QD 1X/DAY
     Route: 058
     Dates: start: 20190712
  9. NADROPARIN CALCIUM [Suspect]
     Active Substance: NADROPARIN CALCIUM
     Dosage: 0.3 ML, ONCE/SINGLE
     Route: 058
     Dates: start: 201907
  10. CIPRALEX [Suspect]
     Active Substance: ESCITALOPRAM OXALATE
     Indication: Obsessive-compulsive disorder
     Dosage: 20 MG, QD ( (1 TBL) (DRUG TAKEN BY THE FATHER)
     Route: 065
     Dates: start: 20120312
  11. CIPRALEX [Suspect]
     Active Substance: ESCITALOPRAM OXALATE
     Dosage: 10 MG, QD  (IN THE MORNING, PRODUCT TAKEN BY THE FATHER)
     Route: 065
     Dates: start: 20120312
  12. CIPRALEX [Suspect]
     Active Substance: ESCITALOPRAM OXALATE
     Dosage: UNK
     Route: 065
  13. XALATAN [Suspect]
     Active Substance: LATANOPROST
     Indication: Glaucoma
     Dosage: 1 DOSAGE FORM, QD (1-1 DROP, DAILY (DRUG TAKEN BY THE FATHER))
     Route: 050
     Dates: start: 20180424
  14. LIPIDIL [Suspect]
     Active Substance: FENOFIBRATE
     Dosage: 267 MG, QD  (DRUG TAKEN BY THE FATHER)
     Route: 050
     Dates: start: 20181213

REACTIONS (4)
  - Abortion spontaneous [Unknown]
  - Paternal exposure during pregnancy [Unknown]
  - Maternal exposure during pregnancy [Unknown]
  - Exposure via body fluid [Unknown]

NARRATIVE: CASE EVENT DATE: 20190101
